FAERS Safety Report 9338666 (Version 6)
Quarter: 2013Q3

REPORT INFORMATION
  Report Type: Spontaneous
  Country: JP (occurrence: JP)
  Receive Date: 20130610
  Receipt Date: 20130905
  Transmission Date: 20140515
  Serious: Yes (Life-Threatening, Hospitalization, Other)
  Sender: FDA-Public Use
  Company Number: JP-BAYER-2013-067812

PATIENT
  Age: 72 Year
  Sex: Male
  Weight: 49 kg

DRUGS (12)
  1. NEXAVAR [Suspect]
     Indication: HEPATOCELLULAR CARCINOMA
     Dosage: UNK
     Route: 048
     Dates: start: 20120201, end: 20120507
  2. NEXAVAR [Suspect]
     Indication: HEPATOCELLULAR CARCINOMA
     Dosage: UNK
     Route: 048
     Dates: start: 20120508, end: 20130426
  3. ALLEGRA [Concomitant]
     Indication: ALLERGY PROPHYLAXIS
     Dosage: 60 MG, BID
     Route: 048
     Dates: start: 20120201, end: 20130426
  4. LACB-R [Concomitant]
     Indication: PROPHYLAXIS AGAINST DIARRHOEA
     Dosage: DAILY DOSE 3 G
     Route: 048
     Dates: start: 20120201, end: 20130426
  5. GLYCYRON [AMINOACETIC ACID,DL-METHIONINE,GLYCYRRHIZIC ACID] [Concomitant]
     Indication: LIVER DISORDER
     Dosage: 1 DF, TID
     Route: 048
     Dates: start: 2006, end: 20130426
  6. AMLODIN [Concomitant]
     Indication: HYPERTENSION
     Dosage: 5 MG, BID
     Route: 048
     Dates: start: 2006, end: 20130426
  7. TAKEPRON [Concomitant]
     Indication: GASTRITIS
     Dosage: 15 MG, QD
     Route: 048
     Dates: start: 20120703
  8. PASTARON [Concomitant]
     Indication: DRUG TOXICITY PROPHYLAXIS
     Dosage: UNK
     Route: 061
     Dates: start: 20120127, end: 20130426
  9. DERMOVATE [Concomitant]
     Indication: PALMAR-PLANTAR ERYTHRODYSAESTHESIA SYNDROME
     Dosage: UNK
     Route: 061
     Dates: start: 20120214, end: 20130426
  10. LOPEMIN [Concomitant]
     Indication: DIARRHOEA
     Dosage: 2 MG, PRN
     Route: 048
     Dates: start: 20130412
  11. MUCOSOLVAN [Concomitant]
     Dosage: 15 MG, TID
     Route: 048
     Dates: start: 20130412
  12. LAC B [Concomitant]
     Indication: PROPHYLAXIS AGAINST DIARRHOEA
     Dosage: DAILY DOSE 3 G
     Route: 048
     Dates: start: 20120201, end: 20130426

REACTIONS (7)
  - Hepatic cancer [Recovered/Resolved]
  - Abdominal pain [Recovered/Resolved]
  - Vomiting [Recovered/Resolved]
  - Hepatorenal failure [None]
  - Ischaemic hepatitis [None]
  - Shock [None]
  - Hepatic haemorrhage [None]
